FAERS Safety Report 23062118 (Version 1)
Quarter: 2023Q4

REPORT INFORMATION
  Report Type: Spontaneous
  Country: US (occurrence: US)
  Receive Date: 20231013
  Receipt Date: 20231013
  Transmission Date: 20240109
  Serious: No
  Sender: FDA-Public Use
  Company Number: US-STRIDES ARCOLAB LIMITED-2023SP002019

PATIENT
  Sex: Female

DRUGS (1)
  1. ACCOLATE [Suspect]
     Active Substance: ZAFIRLUKAST
     Indication: Product used for unknown indication
     Dosage: UNK, ORAL TABLET
     Route: 048

REACTIONS (1)
  - Product dose omission issue [Unknown]
